FAERS Safety Report 25325352 (Version 1)
Quarter: 2025Q2

REPORT INFORMATION
  Report Type: Report from Study
  Country: US (occurrence: US)
  Receive Date: 20250516
  Receipt Date: 20250516
  Transmission Date: 20250717
  Serious: Yes (Hospitalization, Other)
  Sender: ABBVIE
  Company Number: US-ABBVIE-6227172

PATIENT
  Age: 38 Year
  Sex: Female
  Weight: 54.431 kg

DRUGS (8)
  1. HUMIRA [Suspect]
     Active Substance: ADALIMUMAB
     Indication: Rheumatoid arthritis
     Route: 058
     Dates: start: 202210, end: 2024
  2. HUMIRA [Suspect]
     Active Substance: ADALIMUMAB
     Route: 058
     Dates: start: 2024, end: 20241229
  3. TRETINOIN [Concomitant]
     Active Substance: TRETINOIN
     Indication: Therapeutic skin care topical
     Route: 065
  4. TIZANIDINE [Concomitant]
     Active Substance: TIZANIDINE
     Indication: Muscle relaxant therapy
     Route: 065
  5. NEXIUM [Concomitant]
     Active Substance: ESOMEPRAZOLE MAGNESIUM
     Indication: Gastrooesophageal reflux disease
     Route: 065
  6. KLONOPIN [Concomitant]
     Active Substance: CLONAZEPAM
     Indication: Fibromyalgia
     Route: 065
  7. ACYCLOVIR [Concomitant]
     Active Substance: ACYCLOVIR
     Indication: Oral herpes
     Route: 065
  8. CIMZIA [Suspect]
     Active Substance: CERTOLIZUMAB PEGOL
     Indication: Rheumatoid arthritis
     Route: 065
     Dates: start: 2024, end: 2024

REACTIONS (23)
  - Large intestinal obstruction [Recovered/Resolved]
  - Vaginal haemorrhage [Recovered/Resolved]
  - Surgery [Unknown]
  - Ileus [Recovered/Resolved]
  - Injection site pain [Recovered/Resolved]
  - Injection site bruising [Recovered/Resolved]
  - Skin swelling [Recovered/Resolved]
  - Adenomyosis [Recovered/Resolved]
  - Regurgitation [Recovered/Resolved]
  - Vaginal haemorrhage [Recovered/Resolved]
  - Renal cyst [Not Recovered/Not Resolved]
  - Cholelithiasis [Not Recovered/Not Resolved]
  - Spinal osteoarthritis [Not Recovered/Not Resolved]
  - Nephrolithiasis [Not Recovered/Not Resolved]
  - Endometriosis [Recovered/Resolved]
  - Feeding disorder [Recovered/Resolved]
  - Abdominal pain [Recovering/Resolving]
  - Ovarian cyst [Not Recovered/Not Resolved]
  - Fallopian tube cyst [Recovered/Resolved]
  - Uterine cyst [Recovered/Resolved]
  - Wound dehiscence [Recovering/Resolving]
  - Injection site erythema [Recovered/Resolved]
  - Radical hysterectomy [Unknown]

NARRATIVE: CASE EVENT DATE: 20230101
